FAERS Safety Report 20826286 (Version 2)
Quarter: 2022Q2

REPORT INFORMATION
  Report Type: Report from Study
  Country: NL (occurrence: NL)
  Receive Date: 20220513
  Receipt Date: 20220519
  Transmission Date: 20220720
  Serious: Yes (Other)
  Sender: FDA-Public Use
  Company Number: NL-ABBVIE-22K-114-4391308-00

PATIENT
  Sex: Female

DRUGS (1)
  1. LEUPROLIDE ACETATE [Suspect]
     Active Substance: LEUPROLIDE ACETATE
     Indication: Endometriosis
     Route: 065

REACTIONS (7)
  - Pulmonary embolism [Unknown]
  - Heavy menstrual bleeding [Recovered/Resolved]
  - Emotional disorder [Unknown]
  - Depressed mood [Unknown]
  - Alopecia [Recovered/Resolved]
  - Weight increased [Unknown]
  - Amenorrhoea [Unknown]
